FAERS Safety Report 11549873 (Version 1)
Quarter: 2015Q3

REPORT INFORMATION
  Report Type: Spontaneous
  Country: US (occurrence: US)
  Receive Date: 20150903
  Receipt Date: 20150903
  Transmission Date: 20151125
  Serious: No
  Sender: FDA-Public Use
  Company Number: US-ELI_LILLY_AND_COMPANY-US201301009490

PATIENT
  Sex: Female

DRUGS (1)
  1. HUMALOG [Suspect]
     Active Substance: INSULIN LISPRO
     Indication: TYPE 2 DIABETES MELLITUS
     Dosage: 15 U, TID
     Dates: start: 2012

REACTIONS (5)
  - Drug ineffective [Not Recovered/Not Resolved]
  - Influenza [Not Recovered/Not Resolved]
  - Hypogeusia [Not Recovered/Not Resolved]
  - Blood glucose increased [Not Recovered/Not Resolved]
  - Injection site pain [Not Recovered/Not Resolved]
